FAERS Safety Report 12723223 (Version 1)
Quarter: 2016Q3

REPORT INFORMATION
  Report Type: Spontaneous
  Country: US (occurrence: US)
  Receive Date: 20160908
  Receipt Date: 20160908
  Transmission Date: 20161109
  Serious: No
  Sender: FDA-Public Use
  Company Number: US-ZYDUS-008740

PATIENT
  Sex: Female

DRUGS (2)
  1. MELOXICAM. [Suspect]
     Active Substance: MELOXICAM
     Indication: CENTRAL PAIN SYNDROME
     Route: 048
     Dates: start: 20131227, end: 20150120
  2. GABAPENTIN. [Concomitant]
     Active Substance: GABAPENTIN
     Indication: CENTRAL PAIN SYNDROME
     Route: 048
     Dates: start: 201501

REACTIONS (2)
  - Urticaria [Not Recovered/Not Resolved]
  - Dyspnoea [Unknown]

NARRATIVE: CASE EVENT DATE: 2015
